FAERS Safety Report 25362085 (Version 1)
Quarter: 2025Q2

REPORT INFORMATION
  Report Type: Spontaneous
  Country: US (occurrence: None)
  Receive Date: 20250524
  Receipt Date: 20250524
  Transmission Date: 20250717
  Serious: Yes (Other)
  Sender: FDA-CTU
  Company Number: None

PATIENT
  Age: 38 Year
  Sex: Female
  Weight: 56.25 kg

DRUGS (1)
  1. CETIRIZINE [Suspect]
     Active Substance: CETIRIZINE HYDROCHLORIDE
     Indication: Hypersensitivity
     Route: 048
     Dates: start: 20120901, end: 20220406

REACTIONS (6)
  - Pruritus [None]
  - Sleep disorder [None]
  - Disturbance in attention [None]
  - Impaired work ability [None]
  - Irritability [None]
  - Frustration tolerance decreased [None]

NARRATIVE: CASE EVENT DATE: 20220404
